FAERS Safety Report 10371969 (Version 2)
Quarter: 2014Q3

REPORT INFORMATION
  Report Type: Spontaneous
  Country: US (occurrence: US)
  Receive Date: 20140808
  Receipt Date: 20140919
  Transmission Date: 20150326
  Serious: Yes (Hospitalization)
  Sender: FDA-Public Use
  Company Number: US-BAYER-2014-115373

PATIENT
  Age: 34 Year
  Sex: Female
  Weight: 54.42 kg

DRUGS (6)
  1. PHENERGAN [PROMETHAZINE] [Concomitant]
  2. ANTIVERT [Concomitant]
     Active Substance: MECLIZINE HYDROCHLORIDE
     Indication: VERTIGO
     Dosage: 25 MG, QID, PRN
  3. MIRENA [Suspect]
     Active Substance: LEVONORGESTREL
     Indication: CONTRACEPTION
     Dosage: 20 MCG/24HR, CONT
     Route: 015
     Dates: start: 20080522, end: 20130430
  4. K-DUR [Concomitant]
     Active Substance: POTASSIUM CHLORIDE
     Dosage: 60 MEQ, ONCE
  5. MECLIZINE [Concomitant]
     Active Substance: MECLIZINE\MECLIZINE HYDROCHLORIDE
     Indication: VERTIGO
     Dosage: UNK
  6. PROGESTERON [Concomitant]

REACTIONS (8)
  - Pain [None]
  - Drug ineffective [None]
  - Amenorrhoea [None]
  - Pregnancy with contraceptive device [None]
  - Uterine perforation [None]
  - Device issue [None]
  - Injury [None]
  - Device dislocation [None]

NARRATIVE: CASE EVENT DATE: 200902
